FAERS Safety Report 4783062-1 (Version None)
Quarter: 2005Q3

REPORT INFORMATION
  Report Type: 
  Country: None (occurrence: None)
  Receive Date: 20050928
  Receipt Date: 20050928
  Transmission Date: 20060218
  Serious: Yes (Other)
  Sender: FDA-Public Use
  Company Number: None

PATIENT
  Age: 56 Year
  Sex: Male
  Weight: 131.4524 kg

DRUGS (13)
  1. LISINOPRIL [Suspect]
     Indication: HYPERTENSION
     Dosage: 10MG DAILY PO
     Route: 048
     Dates: start: 20050508, end: 20050706
  2. ALLOPURINOL [Concomitant]
  3. CHLORPROMAZINE HCL [Concomitant]
  4. HYDROBROMIDE [Concomitant]
  5. COLCHICINE [Concomitant]
  6. CYANOCOBALAMIN [Concomitant]
  7. FOLIC ACID [Concomitant]
  8. HYDROCHLOROTHIAZIDE [Concomitant]
  9. LEVOTHYROXINE SODIUM [Concomitant]
  10. MULTI-VITAMIN [Concomitant]
  11. SILDENAFIL CITRATE [Concomitant]
  12. TRAZODONE HCL [Concomitant]
  13. ASPIRIN [Concomitant]

REACTIONS (1)
  - HALLUCINATION [None]
